FAERS Safety Report 6001772-5 (Version None)
Quarter: 2008Q4

REPORT INFORMATION
  Report Type: 
  Country: None (occurrence: None)
  Receive Date: 20081215
  Receipt Date: 20081203
  Transmission Date: 20090506
  Serious: Yes (Death, Hospitalization)
  Sender: FDA-Public Use
  Company Number: US-GENENTECH-273286

PATIENT
  Sex: Male

DRUGS (3)
  1. BEVACIZUMAB [Suspect]
     Indication: RENAL CELL CARCINOMA
     Dosage: 10 MG/KG, DAYS 1 + 15/28DC
     Route: 042
     Dates: start: 20080108
  2. TEMSIROLIMUS [Concomitant]
     Indication: RENAL CELL CARCINOMA
     Dosage: 25 MG, DAYS 1, 8, 15 + 22/28DC
     Route: 042
     Dates: start: 20080108
  3. LISINOPRIL [Concomitant]
     Indication: DRUG USE FOR UNKNOWN INDICATION

REACTIONS (1)
  - ARRHYTHMIA [None]
